FAERS Safety Report 6731968-6 (Version None)
Quarter: 2010Q2

REPORT INFORMATION
  Report Type: 
  Country: None (occurrence: None)
  Receive Date: 20100519
  Receipt Date: 20100505
  Transmission Date: 20101027
  Serious: Yes (Hospitalization, Disabling, Other)
  Sender: FDA-Public Use
  Company Number: PHHY2010BR29446

PATIENT
  Sex: Female

DRUGS (3)
  1. EXFORGE [Suspect]
     Indication: HYPERTENSION
     Dosage: (160/5 MG) 1 DF, DAILY
     Route: 048
     Dates: start: 20090101
  2. DIANE [Concomitant]
     Indication: POLYCYSTIC OVARIES
     Dosage: 35 MG, 1 TABLET DAILY
     Route: 048
  3. RIVOTRIL [Concomitant]
     Indication: ANXIETY
     Dosage: 2 MG, 1 TABLET DAILY
     Route: 048
     Dates: start: 20090101

REACTIONS (6)
  - BEDRIDDEN [None]
  - BLOOD PRESSURE INCREASED [None]
  - HAND FRACTURE [None]
  - ROAD TRAFFIC ACCIDENT [None]
  - SURGERY [None]
  - TIBIA FRACTURE [None]
